FAERS Safety Report 6282801-0 (Version None)
Quarter: 2009Q3

REPORT INFORMATION
  Report Type: 
  Country: None (occurrence: None)
  Receive Date: 20090722
  Receipt Date: 20090722
  Transmission Date: 20100115
  Serious: Yes (Other)
  Sender: FDA-Public Use
  Company Number: None

PATIENT
  Age: 38 Year
  Sex: Female
  Weight: 63.5036 kg

DRUGS (2)
  1. PRISTIQ [Suspect]
     Indication: DEPRESSION
     Dosage: 50 MG 1 DAILY PO
     Route: 048
     Dates: start: 20090423, end: 20090717
  2. PRISTIQ [Suspect]
     Indication: DEPRESSION
     Dosage: 100 MG 1 MG PO
     Route: 048

REACTIONS (15)
  - ABNORMAL DREAMS [None]
  - CONFUSIONAL STATE [None]
  - DIARRHOEA [None]
  - DIZZINESS [None]
  - ECONOMIC PROBLEM [None]
  - FATIGUE [None]
  - HEADACHE [None]
  - IMPAIRED WORK ABILITY [None]
  - IRRITABILITY [None]
  - NAUSEA [None]
  - NIGHT SWEATS [None]
  - POISONING [None]
  - TINNITUS [None]
  - WEIGHT INCREASED [None]
  - WITHDRAWAL SYNDROME [None]
